FAERS Safety Report 5565546-1 (Version None)
Quarter: 2007Q4

REPORT INFORMATION
  Report Type: 
  Country: None (occurrence: None)
  Receive Date: 20071218
  Receipt Date: 20050712
  Transmission Date: 20080405
  Serious: Yes (Death, Hospitalization)
  Sender: FDA-Public Use
  Company Number: US-ROCHE-410713

PATIENT
  Sex: Female

DRUGS (1)
  1. PEGASYS [Suspect]
     Dosage: REDUCED DOSE.
     Route: 058

REACTIONS (4)
  - BRADYCARDIA [None]
  - HYPOTHERMIA [None]
  - RESPIRATORY ARREST [None]
  - VOMITING [None]
